FAERS Safety Report 5306539-9 (Version None)
Quarter: 2007Q2

REPORT INFORMATION
  Report Type: 
  Country: None (occurrence: None)
  Receive Date: 20070424
  Receipt Date: 20070320
  Transmission Date: 20071010
  Serious: Yes (Hospitalization, Other)
  Sender: FDA-Public Use
  Company Number: US-PFIZER INC-2007019627

PATIENT
  Sex: Male
  Weight: 90.7 kg

DRUGS (3)
  1. BEXTRA [Suspect]
     Indication: MUSCLE SPASMS
  2. BEXTRA [Suspect]
     Indication: PAIN
  3. CELEBREX [Suspect]
     Indication: PAIN

REACTIONS (3)
  - CARDIOVASCULAR DISORDER [None]
  - ISCHAEMIC STROKE [None]
  - MYOCARDIAL INFARCTION [None]
